FAERS Safety Report 5774919-3 (Version None)
Quarter: 2008Q2

REPORT INFORMATION
  Report Type: 
  Country: None (occurrence: None)
  Receive Date: 20080616
  Receipt Date: 20080616
  Transmission Date: 20081010
  Serious: Yes (Hospitalization)
  Sender: FDA-Public Use
  Company Number: None

PATIENT
  Sex: Female
  Weight: 56.2 kg

DRUGS (6)
  1. DAUNORUBICIN HCL [Suspect]
     Dosage: 160 MG
  2. PREDNISONE [Suspect]
     Dosage: 1300 MG
  3. VINCRISTINE SULFATE [Suspect]
     Dosage: 8 MG
  4. CYTARABINE [Suspect]
     Dosage: 70 MG
  5. METHOTREXATE [Suspect]
     Dosage: 15 MG
  6. PEG-L-ASPARAGINASE (K-H) [Suspect]
     Dosage: 4050 UNIT

REACTIONS (3)
  - COLECTOMY [None]
  - LARGE INTESTINE PERFORATION [None]
  - PNEUMOPERITONEUM [None]
